FAERS Safety Report 9364152 (Version 1)
Quarter: 2013Q2

REPORT INFORMATION
  Report Type: Spontaneous
  Country: US (occurrence: US)
  Receive Date: 20130624
  Receipt Date: 20130624
  Transmission Date: 20140414
  Serious: No
  Sender: FDA-Public Use
  Company Number: US-MYLANLABS-2013S1007587

PATIENT
  Age: 54 Year
  Sex: Female

DRUGS (2)
  1. CYCLOBENZAPRINE HYDROCHLORIDE [Suspect]
     Indication: MUSCULOSKELETAL PAIN
     Route: 048
     Dates: start: 20130328, end: 201303
  2. CYCLOBENZAPRINE HYDROCHLORIDE [Suspect]
     Indication: NECK PAIN
     Route: 048
     Dates: start: 20130328, end: 201303

REACTIONS (1)
  - Lethargy [Recovered/Resolved]
